FAERS Safety Report 5741312-9 (Version None)
Quarter: 2008Q2

REPORT INFORMATION
  Report Type: 
  Country: None (occurrence: None)
  Receive Date: 20080515
  Receipt Date: 20080429
  Transmission Date: 20081010
  Serious: Yes (Other)
  Sender: FDA-Public Use
  Company Number: B0519607A

PATIENT
  Sex: 0

DRUGS (5)
  1. VALACICLOVIR HYDROCHLORIDE               (VALACYCLOVIR HCL) [Suspect]
     Indication: PROPHYLAXIS
     Dosage: 500 MG/PER DAY/ORAL
     Route: 048
  2. ALEMTUZUMAB [Concomitant]
  3. FLUDARABINE PHOSPHATE [Concomitant]
  4. CYCLOPHOSPHAMIDE [Concomitant]
  5. RITUXIMAB [Concomitant]

REACTIONS (2)
  - BONE MARROW FAILURE [None]
  - THROMBOCYTOPENIA [None]
